FAERS Safety Report 4989335-1 (Version None)
Quarter: 2006Q2

REPORT INFORMATION
  Report Type: 
  Country: None (occurrence: None)
  Receive Date: 20060426
  Receipt Date: 20060413
  Transmission Date: 20061013
  Serious: Yes (Death)
  Sender: FDA-Public Use
  Company Number: 2006US000767

PATIENT
  Age: 70 Year
  Sex: Male
  Weight: 97.5 kg

DRUGS (1)
  1. AMEVIVE FOR IM (AMEVIVE FOR IM) (ALEFACEPT)INJECTION [Suspect]
     Indication: PSORIASIS
     Dosage: 15 MG, WEEKLY, INTRAMUSCULAR
     Route: 030
     Dates: start: 20030417

REACTIONS (8)
  - DIABETES MELLITUS INADEQUATE CONTROL [None]
  - DUODENAL STENOSIS [None]
  - HYPERTENSION [None]
  - MESENTERIC OCCLUSION [None]
  - OBSTRUCTION GASTRIC [None]
  - PANCREATIC CARCINOMA NON-RESECTABLE [None]
  - REFLUX OESOPHAGITIS [None]
  - WEIGHT DECREASED [None]
